FAERS Safety Report 18186316 (Version 2)
Quarter: 2020Q3

REPORT INFORMATION
  Report Type: Spontaneous
  Country: JP (occurrence: JP)
  Receive Date: 20200824
  Receipt Date: 20200831
  Transmission Date: 20201103
  Serious: Yes (Other)
  Sender: FDA-Public Use
  Company Number: JP-MYLANLABS-2020M1072825

PATIENT
  Age: 45 Year
  Sex: Female

DRUGS (21)
  1. CARBOPLATIN. [Suspect]
     Active Substance: CARBOPLATIN
     Indication: NEUROENDOCRINE CARCINOMA
     Dosage: AUC?4; 7 CYCLES AT THE AGE OF 45 YEARS, 1 CYCLE AT THE AGE OF 47 YEARS AND 3 CYCLES AT THE AGE OF 48
     Route: 065
  2. IRINOTECAN [Suspect]
     Active Substance: IRINOTECAN
     Indication: PROPHYLACTIC CHEMOTHERAPY
     Dosage: 70 MILLIGRAM, Q3MONTHS, RECEIVED 2 CYCLES
     Route: 065
  3. PACLITAXEL. [Suspect]
     Active Substance: PACLITAXEL
     Indication: NEUROENDOCRINE CARCINOMA
     Dosage: 140 MILLIGRAM/SQ. METER, 7 CYCLES AT THE AGE OF 45 YEARS, 1 CYCLE AT THE AGE OF 47 YEARS AND 3 CYCLE
     Route: 065
  4. ERIBULIN [Suspect]
     Active Substance: ERIBULIN
     Indication: NEUROENDOCRINE CARCINOMA
     Dosage: 1.4 MILLIGRAM/SQ. METER, RECEIVED 3 CYCLES
     Route: 065
  5. MEDROXYPROGESTERONE [Concomitant]
     Active Substance: MEDROXYPROGESTERONE
     Indication: ENDOMETRIAL STROMAL SARCOMA
  6. CARBOPLATIN. [Suspect]
     Active Substance: CARBOPLATIN
     Indication: METASTASES TO LUNG
  7. IRINOTECAN [Suspect]
     Active Substance: IRINOTECAN
     Indication: NEUROENDOCRINE CARCINOMA
     Dosage: 70 MILLIGRAM, RECEIVED 4 CYCLES
     Route: 065
  8. CISPLATIN. [Suspect]
     Active Substance: CISPLATIN
     Indication: ENDOMETRIAL STROMAL SARCOMA
  9. LEUPRORELIN [Concomitant]
     Active Substance: LEUPROLIDE ACETATE
     Indication: ENDOMETRIAL STROMAL SARCOMA
  10. ANASTROZOLE. [Concomitant]
     Active Substance: ANASTROZOLE
     Indication: NEUROENDOCRINE CARCINOMA
     Route: 065
  11. IRINOTECAN [Suspect]
     Active Substance: IRINOTECAN
     Indication: ENDOMETRIAL STROMAL SARCOMA
  12. CISPLATIN. [Suspect]
     Active Substance: CISPLATIN
     Indication: NEUROENDOCRINE CARCINOMA
     Dosage: 70 MILLIGRAM, RECEIVED 4 CYCLES
     Route: 065
  13. PACLITAXEL. [Suspect]
     Active Substance: PACLITAXEL
     Indication: PROPHYLACTIC CHEMOTHERAPY
  14. CARBOPLATIN. [Suspect]
     Active Substance: CARBOPLATIN
     Indication: PROPHYLACTIC CHEMOTHERAPY
  15. DOXORUBICIN [Suspect]
     Active Substance: DOXORUBICIN
     Indication: NEUROENDOCRINE CARCINOMA
     Dosage: 30 MILLIGRAM, FOR 2 DAYS; TOTAL 3 CYCLES
     Route: 065
  16. IFOSFAMIDE. [Suspect]
     Active Substance: IFOSFAMIDE
     Indication: NEUROENDOCRINE CARCINOMA
     Dosage: 2 GRAM, FOR 4 DAYS; TOTAL 3 CYCLES
     Route: 065
  17. LEUPRORELIN [Concomitant]
     Active Substance: LEUPROLIDE ACETATE
     Indication: NEUROENDOCRINE CARCINOMA
     Route: 065
  18. ANASTROZOLE. [Concomitant]
     Active Substance: ANASTROZOLE
     Indication: ENDOMETRIAL STROMAL SARCOMA
  19. MEDROXYPROGESTERONE [Concomitant]
     Active Substance: MEDROXYPROGESTERONE
     Indication: NEUROENDOCRINE CARCINOMA
     Route: 065
  20. CISPLATIN. [Suspect]
     Active Substance: CISPLATIN
     Indication: PROPHYLACTIC CHEMOTHERAPY
     Dosage: 70 MILLIGRAM, Q3MONTHS, RECEIVED 2 CYCLES
     Route: 065
  21. DEXAMETHASONE. [Suspect]
     Active Substance: DEXAMETHASONE
     Indication: NEUROENDOCRINE CARCINOMA
     Route: 065

REACTIONS (2)
  - Hypersensitivity [Unknown]
  - Drug ineffective [Unknown]
